FAERS Safety Report 14481335 (Version 12)
Quarter: 2019Q2

REPORT INFORMATION
  Report Type: Report from Study
  Country: CA (occurrence: CA)
  Receive Date: 20180202
  Receipt Date: 20190520
  Transmission Date: 20190711
  Serious: Yes (Hospitalization, Other)
  Sender: FDA-Public Use
  Company Number: PHHO2018CA001542

PATIENT
  Age: 15 Year
  Sex: Male

DRUGS (1)
  1. TRAMETINIB [Suspect]
     Active Substance: TRAMETINIB
     Indication: NEUROFIBROMA
     Dosage: 0.875 MG, BID
     Route: 048
     Dates: start: 20160113

REACTIONS (3)
  - Foot fracture [Recovered/Resolved]
  - Osteomyelitis [Recovered/Resolved]
  - Blood culture positive [Recovered/Resolved]

NARRATIVE: CASE EVENT DATE: 20180124
